FAERS Safety Report 25826522 (Version 2)
Quarter: 2025Q3

REPORT INFORMATION
  Report Type: Spontaneous
  Country: CN (occurrence: CN)
  Receive Date: 20250920
  Receipt Date: 20250923
  Transmission Date: 20251021
  Serious: Yes (Life-Threatening, Hospitalization, Other)
  Sender: EMD SERONO INC
  Company Number: CN-Merck Healthcare KGaA-2025047715

PATIENT

DRUGS (1)
  1. TEPOTINIB [Suspect]
     Active Substance: TEPOTINIB
     Indication: Product used for unknown indication

REACTIONS (4)
  - Haemorrhagic ascites [Unknown]
  - Platelet count decreased [Unknown]
  - Shock [Unknown]
  - Diarrhoea [Not Recovered/Not Resolved]
